FAERS Safety Report 13898489 (Version 1)
Quarter: 2017Q3

REPORT INFORMATION
  Report Type: Spontaneous
  Country: US (occurrence: None)
  Receive Date: 20170817
  Receipt Date: 20170817
  Transmission Date: 20171127
  Serious: No
  Sender: FDA-Public Use
  Company Number: None

PATIENT
  Age: 72 Year
  Sex: Female
  Weight: 82.1 kg

DRUGS (2)
  1. ATENOLOL. [Suspect]
     Active Substance: ATENOLOL
     Indication: HYPERTENSION
     Route: 048
  2. ATENOLOL. [Suspect]
     Active Substance: ATENOLOL
     Indication: PALPITATIONS
     Route: 048
     Dates: start: 20170810

REACTIONS (10)
  - Asthenia [None]
  - Headache [None]
  - Burning sensation [None]
  - Tinnitus [None]
  - Dyspnoea [None]
  - Abdominal pain upper [None]
  - Diarrhoea [None]
  - Pain in extremity [None]
  - Oral discomfort [None]
  - Palpitations [None]

NARRATIVE: CASE EVENT DATE: 20170817
